FAERS Safety Report 15932978 (Version 1)
Quarter: 2019Q1

REPORT INFORMATION
  Report Type: Spontaneous
  Country: US (occurrence: US)
  Receive Date: 20190207
  Receipt Date: 20190207
  Transmission Date: 20190417
  Serious: Yes (Other)
  Sender: FDA-Public Use
  Company Number: US-AKORN PHARMACEUTICALS-2019AKN00057

PATIENT
  Sex: Male
  Weight: 66 kg

DRUGS (3)
  1. MYORISAN [Suspect]
     Active Substance: ISOTRETINOIN
     Indication: ACNE
     Dosage: 30 MG
     Dates: start: 20180827, end: 20181003
  2. MYORISAN [Suspect]
     Active Substance: ISOTRETINOIN
     Dosage: 30 MG, FOR A DOSE OF 70 MG (WITH 40 MG)
     Dates: start: 20181003, end: 20181206
  3. MYORISAN [Suspect]
     Active Substance: ISOTRETINOIN
     Indication: ACNE
     Dosage: 40 MG; FOR A DOSE OF 70 MG (WITH 30 MG)
     Dates: start: 20181003, end: 20181206

REACTIONS (4)
  - Depressed mood [Recovered/Resolved]
  - Affect lability [Recovered/Resolved]
  - Crying [Recovered/Resolved]
  - Social avoidant behaviour [Recovered/Resolved]

NARRATIVE: CASE EVENT DATE: 2018
